FAERS Safety Report 8316869-4 (Version None)
Quarter: 2012Q2

REPORT INFORMATION
  Report Type: 
  Country: None (occurrence: None)
  Receive Date: 20120427
  Receipt Date: 20120423
  Transmission Date: 20120825
  Serious: No
  Sender: FDA-Public Use
  Company Number: PHEH2012US008761

PATIENT
  Sex: Female
  Weight: 71 kg

DRUGS (3)
  1. SYNTHROID [Concomitant]
  2. VITAMIN D [Concomitant]
  3. TASIGNA [Suspect]
     Dosage: 300 MG, BID
     Route: 048

REACTIONS (2)
  - WEIGHT DECREASED [None]
  - DECREASED APPETITE [None]
